FAERS Safety Report 24293927 (Version 1)
Quarter: 2024Q3

REPORT INFORMATION
  Report Type: Spontaneous
  Country: US (occurrence: None)
  Receive Date: 20240906
  Receipt Date: 20240906
  Transmission Date: 20241017
  Serious: No
  Sender: DOMPE FARMACEUTICI
  Company Number: US-FARMAPROD-202308-202403-0889

PATIENT
  Age: 77 Year
  Sex: Female

DRUGS (14)
  1. OXERVATE [Suspect]
     Active Substance: CENEGERMIN-BKBJ
     Indication: Neurotrophic keratopathy
     Route: 047
     Dates: start: 20240226
  2. SUCRALFATE [Concomitant]
     Active Substance: SUCRALFATE
  3. VITAMIN A [Concomitant]
     Active Substance: VITAMIN A
  4. UNSPECIFIED INGREDIENT [Concomitant]
     Active Substance: UNSPECIFIED INGREDIENT
  5. KRILL OIL [Concomitant]
     Active Substance: DIETARY SUPPLEMENT\KRILL OIL
  6. MAGNESIUM [Concomitant]
     Active Substance: MAGNESIUM
  7. PROTONIX [Concomitant]
     Active Substance: PANTOPRAZOLE SODIUM
  8. VITAMIN D3 [Concomitant]
     Active Substance: CHOLECALCIFEROL
  9. AMLODIPINE BESYLATE [Concomitant]
     Active Substance: AMLODIPINE BESYLATE
  10. BYSTOLIC [Concomitant]
     Active Substance: NEBIVOLOL HYDROCHLORIDE
  11. LOSARTAN POTASSIUM [Concomitant]
     Active Substance: LOSARTAN POTASSIUM
  12. LEVOTHYROXINE SODIUM [Concomitant]
     Active Substance: LEVOTHYROXINE SODIUM
  13. LIPITOR [Concomitant]
     Active Substance: ATORVASTATIN CALCIUM
  14. PROLIA [Concomitant]
     Active Substance: DENOSUMAB
     Dosage: SYRINGE

REACTIONS (6)
  - Eye pain [Unknown]
  - Eye swelling [Unknown]
  - Erythema of eyelid [Unknown]
  - Swelling of eyelid [Unknown]
  - Periorbital swelling [Unknown]
  - Eyelid ptosis [Unknown]

NARRATIVE: CASE EVENT DATE: 20240325
